FAERS Safety Report 5312221-4 (Version None)
Quarter: 2007Q2

REPORT INFORMATION
  Report Type: 
  Country: None (occurrence: None)
  Receive Date: 20070430
  Receipt Date: 20060914
  Transmission Date: 20071010
  Serious: No
  Sender: FDA-Public Use
  Company Number: 2006UW18051

PATIENT
  Age: 65 Year
  Sex: Female
  Weight: 48.5 kg

DRUGS (10)
  1. NEXIUM [Suspect]
     Indication: GASTROOESOPHAGEAL REFLUX DISEASE
     Route: 048
     Dates: start: 20060911
  2. ACTONEL [Concomitant]
  3. DIGITEK [Concomitant]
  4. WELCHOL [Concomitant]
  5. ZETIA [Concomitant]
  6. SINGULAIR [Concomitant]
  7. ULTRAM [Concomitant]
  8. TYLENOL [Concomitant]
  9. FLONASE [Concomitant]
  10. SUCRALFATE [Concomitant]

REACTIONS (1)
  - THROAT IRRITATION [None]
